FAERS Safety Report 8367180-7 (Version None)
Quarter: 2012Q1

REPORT INFORMATION
  Report Type: 
  Country: None (occurrence: None)
  Receive Date: 20120323
  Receipt Date: 20110728
  Transmission Date: 20120608
  Serious: Yes (Hospitalization)
  Sender: FDA-Public Use
  Company Number: 163-21880-11073407

PATIENT
  Age: 72 Year
  Sex: Male

DRUGS (4)
  1. REVLIMID [Suspect]
     Indication: MYELOFIBROSIS
     Dosage: 5 MG, 1 IN 1 D, PO; 10-15MG, DAILY, PO; 15 MG, 1 IN 1 D PO; 10 MG, 1 I N 1 D, ORL
     Route: 048
     Dates: start: 20081101
  2. REVLIMID [Suspect]
     Indication: MYELOFIBROSIS
     Dosage: 5 MG, 1 IN 1 D, PO; 10-15MG, DAILY, PO; 15 MG, 1 IN 1 D PO; 10 MG, 1 I N 1 D, ORL
     Route: 048
     Dates: start: 20090101, end: 20090101
  3. REVLIMID [Suspect]
     Indication: MYELOFIBROSIS
     Dosage: 5 MG, 1 IN 1 D, PO; 10-15MG, DAILY, PO; 15 MG, 1 IN 1 D PO; 10 MG, 1 I N 1 D, ORL
     Route: 048
     Dates: start: 20100201, end: 20100101
  4. REVLIMID [Suspect]
     Indication: MYELOFIBROSIS
     Dosage: 5 MG, 1 IN 1 D, PO; 10-15MG, DAILY, PO; 15 MG, 1 IN 1 D PO; 10 MG, 1 I N 1 D, ORL
     Route: 048
     Dates: start: 20110301

REACTIONS (1)
  - PNEUMONIA [None]
